FAERS Safety Report 10926050 (Version 1)
Quarter: 2015Q1

REPORT INFORMATION
  Report Type: Spontaneous
  Country: US (occurrence: None)
  Receive Date: 20150202
  Receipt Date: 20150202
  Transmission Date: 20150721
  Serious: Yes (Hospitalization)
  Sender: FDA-Public Use
  Company Number: TPA2012A06662

PATIENT
  Age: 41 Year
  Sex: Female

DRUGS (9)
  1. FLECAINIDE [Concomitant]
     Active Substance: FLECAINIDE
  2. SINGULAIR (MONTELUKAST SODIUM) [Concomitant]
  3. ALBUTEROL (SALBUTAMOL) [Concomitant]
     Active Substance: ALBUTEROL
  4. NORETHINDRONE. [Concomitant]
     Active Substance: NORETHINDRONE
  5. METAMUCIL THERAPY FOR REGULARITY [Concomitant]
     Active Substance: PSYLLIUM HUSK
  6. DEXILANT [Suspect]
     Active Substance: DEXLANSOPRAZOLE
     Indication: GASTROOESOPHAGEAL REFLUX DISEASE
  7. ZOFRAN (ONDANSETRON) [Concomitant]
  8. DILTIAZEM [Concomitant]
     Active Substance: DILTIAZEM
  9. UNK LAXATIVES [Concomitant]

REACTIONS (1)
  - Irritable bowel syndrome [None]

NARRATIVE: CASE EVENT DATE: 20120902
